FAERS Safety Report 10841323 (Version 3)
Quarter: 2015Q2

REPORT INFORMATION
  Report Type: Spontaneous
  Country: JP (occurrence: None)
  Receive Date: 20150218
  Receipt Date: 20150410
  Transmission Date: 20150821
  Serious: Yes (Life-Threatening)
  Sender: FDA-Public Use
  Company Number: 2015BCR00027

PATIENT
  Age: 83 Year
  Sex: Female

DRUGS (5)
  1. RAPIACTA [Suspect]
     Active Substance: PERAMIVIR
     Indication: INFLUENZA
     Route: 042
     Dates: start: 20150126, end: 20150126
  2. ANHIBA [Suspect]
     Active Substance: ACETAMINOPHEN
     Indication: INFLUENZA
     Route: 054
     Dates: start: 20150126, end: 20150126
  3. CRAVIT (LEVOFLOXACIN HYDRATE) [Suspect]
     Active Substance: LEVOFLOXACIN
     Indication: PNEUMONIA BACTERIAL
     Route: 042
     Dates: start: 20150127, end: 20150127
  4. CEFTRIAXONE SODIUM HYDRATE (CEFTRIAONE SODIUM HYDRATE) [Concomitant]
     Dosage: 0.5 DOSAGE UNITS, UNK, INTRAVENOUS
     Route: 042
     Dates: start: 20150127
  5. ACELIO [Suspect]
     Active Substance: ACETAMINOPHEN
     Indication: INFLUENZA
     Route: 042
     Dates: start: 20150127, end: 20150127

REACTIONS (1)
  - Anaphylactoid shock [None]

NARRATIVE: CASE EVENT DATE: 20150127
